FAERS Safety Report 22732690 (Version 2)
Quarter: 2024Q1

REPORT INFORMATION
  Report Type: Spontaneous
  Country: US (occurrence: US)
  Receive Date: 20230720
  Receipt Date: 20240117
  Transmission Date: 20240410
  Serious: No
  Sender: FDA-Public Use
  Company Number: US-NOVOPROD-1039256

PATIENT
  Age: 72 Year
  Sex: Male

DRUGS (3)
  1. OZEMPIC [Suspect]
     Active Substance: SEMAGLUTIDE
     Indication: Product used for unknown indication
     Dosage: UNK
     Route: 058
     Dates: start: 2022
  2. OFEV [Suspect]
     Active Substance: NINTEDANIB
     Indication: Idiopathic pulmonary fibrosis
  3. OFEV [Suspect]
     Active Substance: NINTEDANIB
     Indication: Pulmonary fibrosis
     Dosage: 300 MG (150 MG, 1 IN 12 HOUR)
     Route: 048
     Dates: start: 20221006

REACTIONS (6)
  - Decreased appetite [Not Recovered/Not Resolved]
  - Abdominal distension [Unknown]
  - Constipation [Recovering/Resolving]
  - Dyspepsia [Recovered/Resolved]
  - Gastrooesophageal reflux disease [Unknown]
  - Dyspepsia [Unknown]

NARRATIVE: CASE EVENT DATE: 20221006
